FAERS Safety Report 20771337 (Version 1)
Quarter: 2022Q2

REPORT INFORMATION
  Report Type: Report from Study
  Country: US (occurrence: None)
  Receive Date: 20220429
  Receipt Date: 20220429
  Transmission Date: 20220720
  Serious: Yes (Hospitalization)
  Sender: FDA-Public Use
  Company Number: US-Eisai Medical Research-EC-2022-113722

PATIENT
  Age: 63 Year
  Sex: Female

DRUGS (16)
  1. LENVIMA [Suspect]
     Active Substance: LENVATINIB
     Indication: Endometrial cancer
     Route: 048
     Dates: start: 20220210, end: 20220421
  2. ACTOS [Concomitant]
     Active Substance: PIOGLITAZONE HYDROCHLORIDE
  3. LIPITOR [Concomitant]
     Active Substance: ATORVASTATIN CALCIUM
  4. ADVIL [Concomitant]
     Active Substance: IBUPROFEN
  5. VENTOLIN HFA [Concomitant]
     Active Substance: ALBUTEROL SULFATE
  6. OXYCODONE [Concomitant]
     Active Substance: OXYCODONE
  7. CYMBALTA [Concomitant]
     Active Substance: DULOXETINE HYDROCHLORIDE
  8. SYNTHROID [Concomitant]
     Active Substance: LEVOTHYROXINE SODIUM
  9. GABAPENTIN [Concomitant]
     Active Substance: GABAPENTIN
  10. BACTROBAN NASAL [Concomitant]
  11. ZESTRIL [Concomitant]
     Active Substance: LISINOPRIL
  12. PROCHLORPERAZINE [Concomitant]
     Active Substance: PROCHLORPERAZINE
  13. SENNOSIDES [Concomitant]
     Active Substance: SENNOSIDES
  14. ONDANSETRON [Concomitant]
     Active Substance: ONDANSETRON
  15. ASMANEX HFA [Concomitant]
     Active Substance: MOMETASONE FUROATE
  16. LIDOCAINE\PRILOCAINE [Concomitant]
     Active Substance: LIDOCAINE\PRILOCAINE

REACTIONS (3)
  - Diarrhoea [Not Recovered/Not Resolved]
  - Dehydration [Not Recovered/Not Resolved]
  - Hypotension [Not Recovered/Not Resolved]

NARRATIVE: CASE EVENT DATE: 20220101
